FAERS Safety Report 7048093-X (Version None)
Quarter: 2010Q4

REPORT INFORMATION
  Report Type: 
  Country: None (occurrence: None)
  Receive Date: 20101015
  Receipt Date: 20100909
  Transmission Date: 20110411
  Serious: Yes (Death, Hospitalization, Other)
  Sender: FDA-Public Use
  Company Number: US-BAXTER-2009BH011595

PATIENT
  Age: 66 Year
  Sex: Female
  Weight: 108 kg

DRUGS (89)
  1. HEPARIN SODIUM INJECTION [Suspect]
     Indication: CARDIAC OPERATION
     Route: 042
     Dates: start: 20070607, end: 20070607
  2. HEPARIN SODIUM INJECTION [Suspect]
     Indication: CATHETERISATION CARDIAC
     Route: 042
     Dates: start: 20070607, end: 20070607
  3. HEPARIN SODIUM INJECTION [Suspect]
     Indication: AORTIC VALVE REPLACEMENT
     Route: 042
     Dates: start: 20070607, end: 20070607
  4. HEPARIN SODIUM INJECTION [Suspect]
     Indication: TRICUSPID VALVE REPLACEMENT
     Route: 042
     Dates: start: 20070607, end: 20070607
  5. HEPARIN SODIUM INJECTION [Suspect]
     Indication: CORONARY ARTERY BYPASS
     Route: 042
     Dates: start: 20070607, end: 20070607
  6. HEPARIN SODIUM INJECTION [Suspect]
     Indication: INTRA-AORTIC BALLOON PLACEMENT
     Route: 042
     Dates: start: 20070607, end: 20070607
  7. HEPARIN SODIUM INJECTION [Suspect]
     Route: 042
     Dates: start: 20070604, end: 20070601
  8. HEPARIN SODIUM INJECTION [Suspect]
     Route: 042
     Dates: start: 20070604, end: 20070601
  9. HEPARIN SODIUM INJECTION [Suspect]
     Route: 042
     Dates: start: 20070604, end: 20070601
  10. HEPARIN SODIUM INJECTION [Suspect]
     Route: 042
     Dates: start: 20070604, end: 20070601
  11. HEPARIN SODIUM INJECTION [Suspect]
     Route: 042
     Dates: start: 20070604, end: 20070601
  12. HEPARIN SODIUM INJECTION [Suspect]
     Route: 042
     Dates: start: 20070604, end: 20070601
  13. HEPARIN SODIUM INJECTION [Suspect]
     Route: 042
     Dates: start: 20070604, end: 20070604
  14. HEPARIN SODIUM INJECTION [Suspect]
     Route: 042
     Dates: start: 20070604, end: 20070604
  15. HEPARIN SODIUM INJECTION [Suspect]
     Route: 042
     Dates: start: 20070604, end: 20070604
  16. HEPARIN SODIUM INJECTION [Suspect]
     Route: 042
     Dates: start: 20070604, end: 20070604
  17. HEPARIN SODIUM INJECTION [Suspect]
     Route: 042
     Dates: start: 20070604, end: 20070604
  18. HEPARIN SODIUM INJECTION [Suspect]
     Route: 042
     Dates: start: 20070604, end: 20070604
  19. HEPARIN SODIUM [Suspect]
     Indication: CARDIAC OPERATION
     Route: 065
     Dates: start: 20070607
  20. HEPARIN SODIUM [Suspect]
     Indication: CATHETERISATION CARDIAC
     Route: 065
     Dates: start: 20070607
  21. HEPARIN SODIUM [Suspect]
     Indication: AORTIC VALVE REPLACEMENT
     Route: 065
     Dates: start: 20070607
  22. HEPARIN SODIUM [Suspect]
     Indication: TRICUSPID VALVE REPLACEMENT
     Route: 065
     Dates: start: 20070607
  23. HEPARIN SODIUM [Suspect]
     Indication: CORONARY ARTERY BYPASS
     Route: 065
     Dates: start: 20070607
  24. HEPARIN SODIUM [Suspect]
     Route: 042
     Dates: start: 20070614, end: 20070615
  25. HEPARIN SODIUM [Suspect]
     Route: 042
     Dates: start: 20070614, end: 20070615
  26. HEPARIN SODIUM [Suspect]
     Route: 042
     Dates: start: 20070614, end: 20070615
  27. HEPARIN SODIUM [Suspect]
     Route: 042
     Dates: start: 20070614, end: 20070615
  28. HEPARIN SODIUM [Suspect]
     Route: 042
     Dates: start: 20070614, end: 20070615
  29. HEPARIN SODIUM 5,000 UNITS IN DEXTROSE 5% [Suspect]
     Indication: PRODUCT USED FOR UNKNOWN INDICATION
     Route: 042
     Dates: start: 20070604, end: 20070608
  30. HEPARIN SODIUM 5,000 UNITS IN DEXTROSE 5% [Suspect]
     Route: 042
     Dates: start: 20070614
  31. HEPARIN LOCK FLUSH [Suspect]
     Indication: INTRAVENOUS CATHETER MANAGEMENT
     Route: 042
     Dates: start: 20070613, end: 20070613
  32. HEPARIN LOCK FLUSH [Suspect]
     Route: 042
     Dates: start: 20070614, end: 20070614
  33. ZETIA [Concomitant]
     Indication: PRODUCT USED FOR UNKNOWN INDICATION
     Route: 065
  34. WARFARIN SODIUM [Concomitant]
     Indication: PRODUCT USED FOR UNKNOWN INDICATION
     Route: 065
  35. LISINOPRIL [Concomitant]
     Indication: PRODUCT USED FOR UNKNOWN INDICATION
     Route: 065
  36. TOPROL-XL [Concomitant]
     Indication: PRODUCT USED FOR UNKNOWN INDICATION
     Route: 065
  37. HYDROCHLOROTHIAZIDE [Concomitant]
     Indication: PRODUCT USED FOR UNKNOWN INDICATION
     Route: 065
  38. SYNTHROID [Concomitant]
     Indication: PRODUCT USED FOR UNKNOWN INDICATION
     Route: 065
  39. KLOR-CON [Concomitant]
     Indication: PRODUCT USED FOR UNKNOWN INDICATION
     Route: 065
  40. EFFEXOR [Concomitant]
     Indication: PRODUCT USED FOR UNKNOWN INDICATION
     Route: 065
  41. ASPIRIN [Concomitant]
     Indication: PRODUCT USED FOR UNKNOWN INDICATION
     Route: 065
  42. IMDUR [Concomitant]
     Indication: PRODUCT USED FOR UNKNOWN INDICATION
     Route: 065
  43. XANAX [Concomitant]
     Indication: PRODUCT USED FOR UNKNOWN INDICATION
     Route: 065
  44. PREGABALIN [Concomitant]
     Indication: PRODUCT USED FOR UNKNOWN INDICATION
     Route: 065
  45. VALIUM [Concomitant]
     Indication: PRODUCT USED FOR UNKNOWN INDICATION
     Route: 065
  46. DILAUDID [Concomitant]
     Indication: PRODUCT USED FOR UNKNOWN INDICATION
     Route: 065
  47. VERSED [Concomitant]
     Indication: PRODUCT USED FOR UNKNOWN INDICATION
     Route: 065
  48. ACETYLSALICYLIC ACID [Concomitant]
     Indication: PRODUCT USED FOR UNKNOWN INDICATION
     Route: 065
  49. ZYRTEC-D 12 HOUR [Concomitant]
     Indication: PRODUCT USED FOR UNKNOWN INDICATION
     Route: 065
  50. SYNTHROID [Concomitant]
     Route: 065
  51. LISINOPRIL [Concomitant]
     Route: 065
  52. K-DUR [Concomitant]
     Indication: PRODUCT USED FOR UNKNOWN INDICATION
     Route: 065
  53. ACUDOSE FRIDGE [Concomitant]
     Indication: PRODUCT USED FOR UNKNOWN INDICATION
     Route: 065
  54. SODIUM CHLORIDE [Concomitant]
     Indication: PRODUCT USED FOR UNKNOWN INDICATION
     Route: 042
  55. MULTIPLE VITAMIN [Concomitant]
     Indication: PRODUCT USED FOR UNKNOWN INDICATION
     Route: 065
  56. PANTOPRAZOLE [Concomitant]
     Indication: PRODUCT USED FOR UNKNOWN INDICATION
     Route: 065
  57. HYDRALAZINE HCL [Concomitant]
     Indication: PRODUCT USED FOR UNKNOWN INDICATION
     Route: 065
  58. ATIVAN [Concomitant]
     Indication: ANXIETY
     Route: 065
  59. DARVOCET-N 100 [Concomitant]
     Indication: PAIN
     Route: 065
  60. RESTORIL [Concomitant]
     Indication: SLEEP DISORDER
     Route: 065
  61. PHENERGAN [Concomitant]
     Indication: VOMITING
     Route: 065
  62. MAALOX                                  /USA/ [Concomitant]
     Indication: DYSPEPSIA
     Route: 065
  63. ATROPINE [Concomitant]
     Indication: BRADYCARDIA
     Route: 065
  64. APRESOLINE [Concomitant]
     Indication: PRODUCT USED FOR UNKNOWN INDICATION
     Route: 065
  65. NITROGLYCERIN [Concomitant]
     Indication: PRODUCT USED FOR UNKNOWN INDICATION
     Route: 065
  66. FLEET READY-TO-USE ENEMA [Concomitant]
     Indication: PRODUCT USED FOR UNKNOWN INDICATION
     Route: 065
  67. KEFZOL (ABL) [Concomitant]
     Indication: PRODUCT USED FOR UNKNOWN INDICATION
     Route: 065
  68. TRIAZOLAM [Concomitant]
     Indication: PRODUCT USED FOR UNKNOWN INDICATION
     Route: 065
  69. BACTROBAN NASAL [Concomitant]
     Indication: PRODUCT USED FOR UNKNOWN INDICATION
     Route: 065
  70. LEVALBUTEROL HYDROCHLORIDE [Concomitant]
     Indication: PRODUCT USED FOR UNKNOWN INDICATION
     Route: 065
  71. LACTATED RINGER'S [Concomitant]
     Indication: PRODUCT USED FOR UNKNOWN INDICATION
     Route: 065
  72. ALBUMIN (HUMAN) [Concomitant]
     Indication: PRODUCT USED FOR UNKNOWN INDICATION
     Route: 065
  73. EPINEPHRINE [Concomitant]
     Indication: PRODUCT USED FOR UNKNOWN INDICATION
     Route: 065
  74. INSULIN [Concomitant]
     Indication: PRODUCT USED FOR UNKNOWN INDICATION
     Route: 065
  75. DOBUTAMINE [Concomitant]
     Indication: PRODUCT USED FOR UNKNOWN INDICATION
     Route: 065
  76. MORPHINE [Concomitant]
     Indication: PAIN
     Route: 065
  77. ZOFRAN [Concomitant]
     Indication: PRODUCT USED FOR UNKNOWN INDICATION
     Route: 065
  78. TYLENOL [Concomitant]
     Indication: PRODUCT USED FOR UNKNOWN INDICATION
     Route: 065
  79. CALCIUM CHLORIDE [Concomitant]
     Indication: PRODUCT USED FOR UNKNOWN INDICATION
     Route: 065
  80. DEXTROSE [Concomitant]
     Indication: HYPOGLYCAEMIA
     Route: 065
  81. SODIUM BICARBONATE [Concomitant]
     Indication: PRODUCT USED FOR UNKNOWN INDICATION
     Route: 065
  82. VASOPRESSIN INJECTION [Concomitant]
     Indication: PRODUCT USED FOR UNKNOWN INDICATION
     Route: 065
  83. CALCIUM CHLORIDE ^BIOTIKA^ [Concomitant]
     Indication: PRODUCT USED FOR UNKNOWN INDICATION
     Route: 065
  84. LIDOCAINE [Concomitant]
     Indication: PRODUCT USED FOR UNKNOWN INDICATION
     Route: 065
  85. BLOOD CELLS, PACKED HUMAN [Concomitant]
     Indication: PRODUCT USED FOR UNKNOWN INDICATION
     Route: 065
  86. CARAFATE [Concomitant]
     Indication: PRODUCT USED FOR UNKNOWN INDICATION
     Route: 065
  87. POTASSIUM CHLORIDE [Concomitant]
     Indication: PRODUCT USED FOR UNKNOWN INDICATION
     Route: 065
  88. MANNITOL [Concomitant]
     Indication: PRODUCT USED FOR UNKNOWN INDICATION
     Route: 065
  89. DIPHENHYDRAMINE [Concomitant]
     Indication: HYPERSENSITIVITY
     Route: 065

REACTIONS (22)
  - ABDOMINAL DISTENSION [None]
  - ANAEMIA [None]
  - BRAIN DEATH [None]
  - BRAIN INJURY [None]
  - CARDIAC OPERATION [None]
  - CEREBROVASCULAR ACCIDENT [None]
  - COMA [None]
  - EXTREMITY NECROSIS [None]
  - GASTROINTESTINAL DISORDER [None]
  - HEART RATE IRREGULAR [None]
  - HEPARIN-INDUCED THROMBOCYTOPENIA [None]
  - HYPERGLYCAEMIA [None]
  - HYPERSENSITIVITY [None]
  - HYPOTENSION [None]
  - HYPOXIC-ISCHAEMIC ENCEPHALOPATHY [None]
  - INFECTION [None]
  - LOSS OF CONSCIOUSNESS [None]
  - MYOCARDIAL INFARCTION [None]
  - PNEUMONIA [None]
  - RESPIRATORY FAILURE [None]
  - SEPSIS [None]
  - UNRESPONSIVE TO STIMULI [None]
